APPROVED DRUG PRODUCT: CYANOCOBALAMIN
Active Ingredient: CYANOCOBALAMIN
Strength: 1MG/ML
Dosage Form/Route: INJECTABLE;INJECTION
Application: A215417 | Product #001 | TE Code: AP
Applicant: SOLA PHARMACEUTICALS
Approved: Apr 15, 2022 | RLD: No | RS: No | Type: RX